FAERS Safety Report 7456549-0 (Version None)
Quarter: 2011Q2

REPORT INFORMATION
  Report Type: 
  Country: None (occurrence: None)
  Receive Date: 20110503
  Receipt Date: 20101201
  Transmission Date: 20111010
  Serious: No
  Sender: FDA-Public Use
  Company Number: US-BAYER-2010-006289

PATIENT
  Age: 53 Year
  Sex: Female

DRUGS (3)
  1. AVELOX [Suspect]
     Indication: BRONCHITIS
     Dosage: 400 MG, QD
     Route: 048
     Dates: start: 20101124, end: 20101125
  2. AVELOX [Suspect]
     Indication: COUGH
  3. AVELOX [Suspect]
     Indication: EAR INFECTION

REACTIONS (3)
  - ASTHENIA [None]
  - PAIN [None]
  - RASH PAPULAR [None]
